FAERS Safety Report 10735412 (Version 1)
Quarter: 2015Q1

REPORT INFORMATION
  Report Type: Spontaneous
  Country: US (occurrence: US)
  Receive Date: 20150126
  Receipt Date: 20150126
  Transmission Date: 20150721
  Serious: Yes (Other)
  Sender: FDA-Public Use
  Company Number: US-JNJFOC-20150109865

PATIENT
  Age: 24 Month
  Sex: Male
  Weight: 12.7 kg

DRUGS (2)
  1. AMOXICILLIN. [Concomitant]
     Active Substance: AMOXICILLIN
     Indication: PRODUCT USED FOR UNKNOWN INDICATION
     Route: 065
  2. CHILDRENS TYLENOL [Suspect]
     Active Substance: ACETAMINOPHEN
     Indication: ACCIDENTAL EXPOSURE TO PRODUCT
     Dosage: 15 CHEWABLE TABLETS
     Route: 048
     Dates: start: 20131228

REACTIONS (2)
  - Accidental exposure to product by child [None]
  - Accidental overdose [Unknown]

NARRATIVE: CASE EVENT DATE: 20131228
